FAERS Safety Report 15119879 (Version 2)
Quarter: 2018Q3

REPORT INFORMATION
  Report Type: Spontaneous
  Country: US (occurrence: US)
  Receive Date: 20180709
  Receipt Date: 20180801
  Transmission Date: 20181010
  Serious: No
  Sender: FDA-Public Use
  Company Number: US-ASTRAZENECA-2018SE86261

PATIENT

DRUGS (4)
  1. FAMOTIDINE. [Concomitant]
     Active Substance: FAMOTIDINE
  2. OMEPERAZOLE [Suspect]
     Active Substance: OMEPRAZOLE
     Route: 048
  3. NEXIUM [Suspect]
     Active Substance: ESOMEPRAZOLE MAGNESIUM
     Route: 048
  4. CARAFATE [Concomitant]
     Active Substance: SUCRALFATE

REACTIONS (6)
  - Oesophagitis [Unknown]
  - Frustration tolerance decreased [Unknown]
  - Gastric disorder [Unknown]
  - Gastritis [Unknown]
  - Pain [Unknown]
  - Haematuria [Unknown]
